FAERS Safety Report 7431885-2 (Version None)
Quarter: 2011Q2

REPORT INFORMATION
  Report Type: 
  Country: None (occurrence: None)
  Receive Date: 20110420
  Receipt Date: 20110420
  Transmission Date: 20111010
  Serious: Yes (Other)
  Sender: FDA-Public Use
  Company Number: None

PATIENT
  Age: 57 Year
  Sex: Male

DRUGS (1)
  1. BUPROPION HCL [Suspect]
     Dosage: QD ORAL
     Route: 048
     Dates: start: 20030101

REACTIONS (4)
  - DEPRESSION [None]
  - DIZZINESS [None]
  - PANIC DISORDER [None]
  - ANXIETY [None]
